FAERS Safety Report 13606354 (Version 1)
Quarter: 2017Q2

REPORT INFORMATION
  Report Type: Spontaneous
  Country: SI (occurrence: SI)
  Receive Date: 20170602
  Receipt Date: 20170602
  Transmission Date: 20170830
  Serious: Yes (Other)
  Sender: FDA-Public Use
  Company Number: PHHY2017SI077765

PATIENT
  Age: 49 Year
  Sex: Female

DRUGS (1)
  1. GILENYA [Suspect]
     Active Substance: FINGOLIMOD HYDROCHLORIDE
     Indication: MULTIPLE SCLEROSIS
     Dosage: UNK
     Route: 065
     Dates: start: 201306

REACTIONS (6)
  - Multiple sclerosis [Unknown]
  - Gait disturbance [Unknown]
  - Neck pain [Unknown]
  - Myelopathy [Unknown]
  - Expanded disability status scale score increased [Unknown]
  - Fatigue [Unknown]
